FAERS Safety Report 20389810 (Version 2)
Quarter: 2022Q2

REPORT INFORMATION
  Report Type: Spontaneous
  Country: US (occurrence: None)
  Receive Date: 20220128
  Receipt Date: 20220428
  Transmission Date: 20220721
  Serious: No
  Sender: FDA-Public Use
  Company Number: US-Ultragenyx Pharmaceutical Inc.-US-UGNX-21-00471

PATIENT
  Age: 7 Year
  Sex: Female
  Weight: 28.1 kg

DRUGS (3)
  1. DOJOLVI [Suspect]
     Active Substance: TRIHEPTANOIN
     Indication: Very long-chain acyl-coenzyme A dehydrogenase deficiency
     Dates: start: 20190626
  2. DOJOLVI [Suspect]
     Active Substance: TRIHEPTANOIN
     Indication: Rhabdomyolysis
  3. LEVOCARNITINE [Concomitant]
     Active Substance: LEVOCARNITINE
     Indication: Product used for unknown indication

REACTIONS (1)
  - Free fatty acids increased [Unknown]

NARRATIVE: CASE EVENT DATE: 20211122
